FAERS Safety Report 4855374-4 (Version None)
Quarter: 2005Q4

REPORT INFORMATION
  Report Type: 
  Country: None (occurrence: None)
  Receive Date: 20051125
  Receipt Date: 20050726
  Transmission Date: 20060501
  Serious: No
  Sender: FDA-Public Use
  Company Number: ATO-05-0216

PATIENT
  Age: 75 Year
  Sex: Male
  Weight: 78.4723 kg

DRUGS (1)
  1. TRISENOX [Suspect]
     Indication: MULTIPLE MYELOMA
     Dosage: 18 MG (18 MG, QD X 4D WK 1 THEN BIW WK 2-5), IVI
     Dates: start: 20050524, end: 20050606

REACTIONS (1)
  - CATHETER SITE HAEMORRHAGE [None]
